FAERS Safety Report 16080843 (Version 2)
Quarter: 2019Q1

REPORT INFORMATION
  Report Type: Report from Study
  Country: None (occurrence: US)
  Receive Date: 20190316
  Receipt Date: 20190330
  Transmission Date: 20190418
  Serious: Yes (Death, Hospitalization, Other)
  Sender: FDA-Public Use
  Company Number: US-ABBVIE-19K-163-2676599-00

PATIENT
  Age: 78 Year
  Sex: Male
  Weight: 68.1 kg

DRUGS (1)
  1. VENCLEXTA [Suspect]
     Active Substance: VENETOCLAX
     Indication: ACUTE MYELOID LEUKAEMIA
     Route: 048
     Dates: start: 20180614

REACTIONS (5)
  - Neutropenia [Not Recovered/Not Resolved]
  - Fatigue [Recovering/Resolving]
  - Acute myeloid leukaemia [Fatal]
  - Pyrexia [Unknown]
  - White blood cell count decreased [Not Recovered/Not Resolved]

NARRATIVE: CASE EVENT DATE: 201806
